FAERS Safety Report 4615808-7 (Version None)
Quarter: 2005Q2

REPORT INFORMATION
  Report Type: 
  Country: None (occurrence: None)
  Receive Date: 20050310
  Receipt Date: 20050126
  Transmission Date: 20051028
  Serious: No
  Sender: FDA-Public Use
  Company Number: 003

PATIENT
  Sex: Male
  Weight: 68.0396 kg

DRUGS (8)
  1. FAZACLO 100 MG CIMA LAB FOR ALAMO PHARMACEUTICALS [Suspect]
     Indication: SCHIZOPHRENIA
     Dosage: 600 MG PER DAY PO
     Route: 048
     Dates: start: 20041130, end: 20050112
  2. COGENTIN [Concomitant]
  3. RISPERDAL [Concomitant]
  4. KEPPRA [Concomitant]
  5. VASOTEC [Concomitant]
  6. ATIVAN (PRN) [Concomitant]
  7. BENADRYL (PRN) [Concomitant]
  8. TYLENOL (PRN) [Concomitant]

REACTIONS (1)
  - AGRANULOCYTOSIS [None]
